FAERS Safety Report 16815953 (Version 1)
Quarter: 2019Q3

REPORT INFORMATION
  Report Type: Report from Study
  Country: None (occurrence: GB)
  Receive Date: 20190917
  Receipt Date: 20190917
  Transmission Date: 20191005
  Serious: Yes (Death)
  Sender: FDA-Public Use
  Company Number: GB-ABBVIE-19K-167-2927831-00

PATIENT
  Sex: Female

DRUGS (1)
  1. DUODOPA [Suspect]
     Active Substance: CARBIDOPA\LEVODOPA
     Indication: PARKINSON^S DISEASE
     Dosage: 100ML CASSETTE DAILY??5MG/1ML??20MG/1ML
     Route: 050

REACTIONS (1)
  - Death [Fatal]
